FAERS Safety Report 24436108 (Version 2)
Quarter: 2024Q4

REPORT INFORMATION
  Report Type: Spontaneous
  Country: IN (occurrence: IN)
  Receive Date: 20241015
  Receipt Date: 20241220
  Transmission Date: 20250115
  Serious: Yes (Death, Life-Threatening, Hospitalization, Other)
  Sender: CIPLA
  Company Number: IN-MLMSERVICE-20240923-PI203857-00185-1

PATIENT

DRUGS (4)
  1. TERBINAFINE [Suspect]
     Active Substance: TERBINAFINE\TERBINAFINE HYDROCHLORIDE
     Indication: Fungal infection
     Dosage: UNK, TAKING THE MEDICATION FOR A WEEK
     Route: 065
  2. TERBINAFINE [Suspect]
     Active Substance: TERBINAFINE\TERBINAFINE HYDROCHLORIDE
     Indication: Body tinea
  3. ITRACONAZOLE [Suspect]
     Active Substance: ITRACONAZOLE
     Indication: Fungal infection
     Dosage: UNK, TAKING THE MEDICATION FOR A WEEK
     Route: 065
  4. ITRACONAZOLE [Suspect]
     Active Substance: ITRACONAZOLE
     Indication: Body tinea

REACTIONS (7)
  - Multiple organ dysfunction syndrome [Fatal]
  - Cutaneous vasculitis [Fatal]
  - Pulmonary alveolar haemorrhage [Fatal]
  - Respiratory failure [Fatal]
  - Myocarditis [Fatal]
  - Nephropathy [Fatal]
  - Liver injury [Fatal]
